FAERS Safety Report 25463110 (Version 2)
Quarter: 2025Q2

REPORT INFORMATION
  Report Type: Spontaneous
  Country: PT (occurrence: PT)
  Receive Date: 20250620
  Receipt Date: 20250624
  Transmission Date: 20250716
  Serious: Yes (Other)
  Sender: PFIZER
  Company Number: PT-MLMSERVICE-20250609-PI536343-00045-1

PATIENT
  Age: 2 Month
  Sex: Male

DRUGS (1)
  1. ALPROSTADIL [Suspect]
     Active Substance: ALPROSTADIL
     Indication: Atrial septal defect

REACTIONS (4)
  - Drug intolerance [Unknown]
  - Infantile apnoea [Unknown]
  - Bradycardia [Unknown]
  - Off label use [Unknown]
